FAERS Safety Report 6930303-8 (Version None)
Quarter: 2010Q3

REPORT INFORMATION
  Report Type: 
  Country: None (occurrence: None)
  Receive Date: 20100818
  Receipt Date: 20100811
  Transmission Date: 20110219
  Serious: Yes (Death, Hospitalization)
  Sender: FDA-Public Use
  Company Number: GB-ROCHE-699744

PATIENT
  Age: 69 Year
  Sex: Male
  Weight: 70 kg

DRUGS (10)
  1. CAPECITABINE [Suspect]
     Indication: LUNG CANCER METASTATIC
     Dosage: DRUG WITHDRAWN.
     Route: 048
     Dates: start: 20090728, end: 20090808
  2. CHLORHEXIDINE GLUCONATE [Concomitant]
  3. DEXAMETASONE [Concomitant]
  4. DIFFLAM [Concomitant]
  5. INDAPAMIDE [Concomitant]
  6. METOCLOPRAMIDE [Concomitant]
  7. ONDANSETRON [Concomitant]
  8. OXALIPLATIN [Concomitant]
     Dates: start: 20090728
  9. PERINDOPRIL [Concomitant]
  10. WARFARIN SODIUM [Concomitant]

REACTIONS (8)
  - ATRIAL FIBRILLATION [None]
  - BLOOD CREATININE INCREASED [None]
  - BLOOD PRESSURE DECREASED [None]
  - BLOOD UREA INCREASED [None]
  - DEATH [None]
  - DIARRHOEA [None]
  - NEUTROPHIL COUNT DECREASED [None]
  - WHITE BLOOD CELL COUNT DECREASED [None]
